FAERS Safety Report 13966391 (Version 1)
Quarter: 2017Q3

REPORT INFORMATION
  Report Type: Spontaneous
  Country: FR (occurrence: FR)
  Receive Date: 20170913
  Receipt Date: 20170913
  Transmission Date: 20171128
  Serious: Yes (Other)
  Sender: FDA-Public Use
  Company Number: FR-MERCK KGAA-2026081

PATIENT
  Sex: Female

DRUGS (1)
  1. NOVOTHYROX [Suspect]
     Active Substance: LEVOTHYROXINE SODIUM
     Indication: POST PROCEDURAL HYPOTHYROIDISM
     Route: 065

REACTIONS (4)
  - Malaise [Not Recovered/Not Resolved]
  - Hyperthyroidism [Unknown]
  - Hypothyroidism [Unknown]
  - Fatigue [Not Recovered/Not Resolved]
